FAERS Safety Report 7830747-6 (Version None)
Quarter: 2011Q4

REPORT INFORMATION
  Report Type: 
  Country: None (occurrence: None)
  Receive Date: 20111021
  Receipt Date: 20111013
  Transmission Date: 20120403
  Serious: Yes (Other)
  Sender: FDA-Public Use
  Company Number: US-AMGEN-USASP2011053378

PATIENT
  Sex: Male

DRUGS (1)
  1. ENBREL [Suspect]
     Indication: PSORIATIC ARTHROPATHY
     Dosage: 50 MG, QWK
     Dates: start: 20040920

REACTIONS (4)
  - INTRAOCULAR LENS IMPLANT [None]
  - CATARACT [None]
  - RETINAL DETACHMENT [None]
  - CATARACT OPERATION COMPLICATION [None]
